FAERS Safety Report 19681039 (Version 3)
Quarter: 2021Q4

REPORT INFORMATION
  Report Type: Report from Study
  Country: GB (occurrence: GB)
  Receive Date: 20210810
  Receipt Date: 20211209
  Transmission Date: 20220304
  Serious: Yes (Life-Threatening, Hospitalization)
  Sender: FDA-Public Use
  Company Number: GB-SA-SAC20210618000927

PATIENT
  Age: 73 Year
  Sex: Female

DRUGS (20)
  1. DUPILUMAB [Suspect]
     Active Substance: DUPILUMAB
     Indication: Dermatitis atopic
     Dosage: 300 MG, QOW
     Route: 058
     Dates: start: 20210325
  2. DUPILUMAB [Suspect]
     Active Substance: DUPILUMAB
     Indication: Eczema
  3. DUPILUMAB [Suspect]
     Active Substance: DUPILUMAB
     Indication: Neurodermatitis
  4. BENDROFLUMETHIAZIDE [Suspect]
     Active Substance: BENDROFLUMETHIAZIDE
     Dosage: UNK
     Dates: start: 202105
  5. INSULIN NOS [Concomitant]
     Active Substance: INSULIN NOS
     Indication: Diabetes mellitus
     Dosage: 40 UNITS OD
     Route: 058
  6. ALENDRONIC ACID [Concomitant]
     Active Substance: ALENDRONIC ACID
     Indication: Osteoporosis
     Dosage: DOSE OF 70 WITH FREQUENCY OW
     Route: 048
  7. ASPIRIN [Concomitant]
     Active Substance: ASPIRIN
     Dosage: 75 MG, QD
     Route: 048
  8. AMITRIPTYLINE [Concomitant]
     Active Substance: AMITRIPTYLINE
     Dosage: 20 MG PO NOCTE
     Route: 048
  9. ATENOLOL [Concomitant]
     Active Substance: ATENOLOL
     Dosage: 100 MG PO NOCTE
     Route: 048
  10. BETNOVATE [Concomitant]
     Active Substance: BETAMETHASONE
     Dosage: UNK UNK, PRN
     Route: 061
  11. CANDESARTAN [Concomitant]
     Active Substance: CANDESARTAN
     Dosage: 30 MG
     Route: 048
  12. CHOLECALCIFEROL [Concomitant]
     Active Substance: CHOLECALCIFEROL
     Dosage: 1 DF, BID
     Route: 048
  13. OMEPRAZOLE [Concomitant]
     Active Substance: OMEPRAZOLE
     Dosage: 20 MG, QD
     Route: 048
  14. ONDANSETRON [Concomitant]
     Active Substance: ONDANSETRON
     Dosage: 8 MG, PRN
     Route: 048
  15. ROSUVASTATIN [Concomitant]
     Active Substance: ROSUVASTATIN
     Dosage: 10 MG
     Route: 048
  16. PREDNISOLONE [Concomitant]
     Active Substance: PREDNISOLONE
     Dosage: 10 MG, BID
     Route: 048
  17. MONUROL [Concomitant]
     Active Substance: FOSFOMYCIN TROMETHAMINE
     Dosage: UNK UNK, PRN
     Route: 048
  18. POLIDOCANOL\UREA [Concomitant]
     Active Substance: POLIDOCANOL\UREA
     Dosage: UNK UNK, PRN
     Route: 061
  19. DERMOL 500 [Concomitant]
     Dosage: UNK UNK, QD
     Route: 061
  20. MUCOSOL [Concomitant]
     Active Substance: ACETYLCYSTEINE
     Dosage: UNK UNK, PRN
     Route: 048

REACTIONS (9)
  - Blood sodium decreased [Recovered/Resolved]
  - Malaise [Unknown]
  - Sciatica [Unknown]
  - Hyponatraemia [Unknown]
  - Coma scale abnormal [Unknown]
  - Nausea [Unknown]
  - Cognitive disorder [Recovered/Resolved]
  - Asthenia [Unknown]
  - Confusional state [Unknown]

NARRATIVE: CASE EVENT DATE: 20210101
